FAERS Safety Report 8878858 (Version 1)
Quarter: 2012Q4

REPORT INFORMATION
  Report Type: 
  Country: US (occurrence: US)
  Receive Date: 20121026
  Receipt Date: 20121026
  Transmission Date: 20130627
  Serious: Yes (Death, Life-Threatening, Other)
  Sender: FDA-Public Use
  Company Number: US-ROXANE LABORATORIES, INC.-2012-RO-02101RO

PATIENT
  Age: 6 Year
  Sex: Male

DRUGS (1)
  1. METHADONE [Suspect]
     Route: 048

REACTIONS (11)
  - Death [Fatal]
  - Cardio-respiratory arrest [Unknown]
  - Pulmonary haemorrhage [Unknown]
  - Pulseless electrical activity [Unknown]
  - Ventricular tachycardia [Unknown]
  - Hyperglycaemia [Unknown]
  - Brain oedema [Unknown]
  - Hypotension [Unknown]
  - Basal ganglia infarction [Unknown]
  - Hypercapnia [Unknown]
  - Bradycardia [Unknown]
